FAERS Safety Report 23289586 (Version 2)
Quarter: 2024Q1

REPORT INFORMATION
  Report Type: Spontaneous
  Country: HU (occurrence: HU)
  Receive Date: 20231212
  Receipt Date: 20240102
  Transmission Date: 20240410
  Serious: Yes (Hospitalization, Other)
  Sender: FDA-Public Use
  Company Number: HU-BAXTER-2023BAX027878

PATIENT
  Age: 68 Year
  Sex: Male
  Weight: 110 kg

DRUGS (14)
  1. CYCLOPHOSPHAMIDE [Suspect]
     Active Substance: CYCLOPHOSPHAMIDE
     Indication: Diffuse large B-cell lymphoma
     Dosage: 1500 MG DOSE: 750 MG/M2, EVERY 3 WEEKS, ONGOING
     Route: 042
     Dates: start: 20230718
  2. DOXORUBICIN [Suspect]
     Active Substance: DOXORUBICIN
     Indication: Diffuse large B-cell lymphoma
     Dosage: 100 MG DOSE: 50 MG/M2, EVERY 3 WEEKS, ONGOING
     Route: 042
     Dates: start: 20230718
  3. PREDNISONE [Suspect]
     Active Substance: PREDNISONE
     Indication: Diffuse large B-cell lymphoma
     Dosage: 100 MG DAILY DAY 1-5 EVERY 3 WEEKS, EVERY 1 DAYS, ONGOING
     Route: 048
     Dates: start: 20230718
  4. RITUXIMAB [Suspect]
     Active Substance: RITUXIMAB
     Indication: Diffuse large B-cell lymphoma
     Dosage: 750 MG, EVERY 3 WEEKS, ONGOING
     Route: 042
     Dates: start: 20230718
  5. VINCRISTINE [Suspect]
     Active Substance: VINCRISTINE
     Indication: Diffuse large B-cell lymphoma
     Dosage: 2 MG DOSE: 1.4 MG/M2, EVERY 3 WEEKS, ONGOING
     Route: 042
     Dates: start: 20230718
  6. FILGRASTIM [Concomitant]
     Active Substance: FILGRASTIM
     Indication: Prophylaxis
     Dosage: UNK 48 MILLION IU, EVERY 1 DAYS
     Route: 065
     Dates: start: 20230721, end: 20230726
  7. CETIRIZINE [Concomitant]
     Active Substance: CETIRIZINE HYDROCHLORIDE
     Indication: Premedication
     Dosage: 10 MG TOTAL
     Route: 065
     Dates: start: 20230718
  8. ENOXAPARIN SODIUM [Concomitant]
     Active Substance: ENOXAPARIN SODIUM
     Indication: Thrombosis prophylaxis
     Dosage: 0.8 ML, BID
     Route: 065
     Dates: start: 20230707
  9. HERPESINE [Concomitant]
     Indication: Antiviral prophylaxis
     Dosage: 400 MG, BID
     Route: 065
     Dates: start: 20230719
  10. AMLODIPINE BESYLATE\LISINOPRIL [Concomitant]
     Active Substance: AMLODIPINE BESYLATE\LISINOPRIL
     Indication: Hypertension
     Dosage: EVERY 1 DAYS (START DATE: 2000) ROUTE OF ADMIN (FREE TEXT): UNKNOWN ROUTE
     Route: 065
  11. ALLOPURINOL [Concomitant]
     Active Substance: ALLOPURINOL
     Indication: Prophylaxis
     Dosage: 300 MG, QD
     Route: 065
     Dates: start: 20230705
  12. NEBIVOLOL HYDROCHLORIDE [Concomitant]
     Active Substance: NEBIVOLOL HYDROCHLORIDE
     Indication: Atrial fibrillation
     Dosage: 5 MG, QD
     Route: 065
     Dates: start: 20230703
  13. ACETAMINOPHEN [Concomitant]
     Active Substance: ACETAMINOPHEN
     Indication: Premedication
     Dosage: 1000 MG TOTAL
     Route: 065
     Dates: start: 20230718
  14. SULFAMETHOXAZOLE\TRIMETHOPRIM [Concomitant]
     Active Substance: SULFAMETHOXAZOLE\TRIMETHOPRIM
     Indication: Prophylaxis
     Dosage: UNK 800/160 MG, EVERY 48 HOURS
     Route: 065
     Dates: start: 20230719

REACTIONS (4)
  - Faeces discoloured [Recovered/Resolved]
  - Gastrointestinal haemorrhage [Recovered/Resolved]
  - Dizziness [Recovered/Resolved]
  - Asthenia [Recovered/Resolved]
